FAERS Safety Report 8501431-0 (Version None)
Quarter: 2012Q3

REPORT INFORMATION
  Report Type: 
  Country: None (occurrence: None)
  Receive Date: 20120710
  Receipt Date: 20120705
  Transmission Date: 20120928
  Serious: No
  Sender: FDA-Public Use
  Company Number: US-B.I. PHARMACEUTICALS,INC./RIDGEFIELD-2012-BP-11088BP

PATIENT
  Sex: Male

DRUGS (2)
  1. METOPROLOL SUCCINATE [Concomitant]
     Indication: HEART RATE IRREGULAR
     Dosage: 25 MG
     Route: 048
     Dates: start: 20120224
  2. PRADAXA [Suspect]
     Indication: ATRIAL FIBRILLATION
     Dosage: 300 MG
     Route: 048
     Dates: start: 20120224

REACTIONS (2)
  - NASAL CONGESTION [None]
  - ASTHENIA [None]
